FAERS Safety Report 4318152-0 (Version None)
Quarter: 2004Q1

REPORT INFORMATION
  Report Type: 
  Country: None (occurrence: None)
  Receive Date: 20040317
  Receipt Date: 20040304
  Transmission Date: 20041129
  Serious: Yes (Hospitalization)
  Sender: FDA-Public Use
  Company Number: CH-GLAXOSMITHKLINE-B0325773A

PATIENT
  Age: 85 Year
  Sex: Female

DRUGS (9)
  1. DEROXAT [Suspect]
     Dosage: 20MG PER DAY
     Route: 048
  2. ASPIRIN [Suspect]
     Indication: PROPHYLAXIS
     Dosage: 100MG PER DAY
     Route: 048
     Dates: start: 20040216
  3. CELEBREX [Suspect]
     Dosage: 200MG PER DAY
     Route: 048
     Dates: start: 20040216
  4. LISINOPRIL AND HYDROCHLOROTHIAZIDE [Concomitant]
     Route: 048
  5. GLIMEPIRIDE [Concomitant]
     Dosage: 2MG PER DAY
     Route: 048
  6. COMILORID [Concomitant]
     Route: 048
  7. MIANSERIN [Concomitant]
     Route: 048
  8. ZOLPIDEM TARTRATE [Concomitant]
     Dosage: 10MG PER DAY
     Route: 048
  9. FERRUM [Concomitant]
     Indication: ANAEMIA
     Route: 048
     Dates: start: 20040202

REACTIONS (9)
  - ANAEMIA [None]
  - DIVERTICULUM [None]
  - DIZZINESS [None]
  - DRUG TOXICITY [None]
  - DUODENAL ULCER HAEMORRHAGE [None]
  - FAECES DISCOLOURED [None]
  - GASTROINTESTINAL DISORDER [None]
  - HAEMORRHOIDS [None]
  - MALAISE [None]
